FAERS Safety Report 13891081 (Version 1)
Quarter: 2017Q3

REPORT INFORMATION
  Report Type: Spontaneous
  Country: FR (occurrence: FR)
  Receive Date: 20170822
  Receipt Date: 20170822
  Transmission Date: 20171127
  Serious: Yes (Other)
  Sender: FDA-Public Use
  Company Number: FR-ASTRAZENECA-2017SE85756

PATIENT
  Age: 20110 Day
  Sex: Male

DRUGS (11)
  1. VALIUM [Concomitant]
     Active Substance: DIAZEPAM
     Indication: AGITATION
     Route: 030
     Dates: start: 20170801, end: 20170801
  2. SODIUM VALPROATE ARROW [Concomitant]
     Indication: BIPOLAR DISORDER
     Dates: end: 20170802
  3. XEROQUEL [Suspect]
     Active Substance: QUETIAPINE FUMARATE
     Indication: BIPOLAR DISORDER
     Route: 048
     Dates: end: 20170801
  4. TERALITHE [Concomitant]
     Active Substance: LITHIUM CARBONATE
     Indication: BIPOLAR DISORDER
     Dates: end: 20170802
  5. TERALITHE [Concomitant]
     Active Substance: LITHIUM CARBONATE
     Indication: BIPOLAR DISORDER
     Dates: start: 20170803
  6. VALIUM [Concomitant]
     Active Substance: DIAZEPAM
     Indication: AGITATION
     Dates: end: 20170802
  7. SODIUM VALPROATE ARROW [Concomitant]
     Indication: BIPOLAR DISORDER
     Dates: start: 20170803
  8. LOXAPAC [Suspect]
     Active Substance: LOXAPINE SUCCINATE
     Indication: BIPOLAR DISORDER
     Dosage: 50 MG IN THE MORNING, AT NOON, IN THE EVENING AND 75 MG AT BEDTIME
     Route: 065
     Dates: end: 20170802
  9. TERALITHE [Concomitant]
     Active Substance: LITHIUM CARBONATE
     Indication: BIPOLAR DISORDER
     Dates: end: 20170731
  10. VALIUM [Concomitant]
     Active Substance: DIAZEPAM
     Indication: AGITATION
     Dates: start: 20170803
  11. ZYPREXA [Suspect]
     Active Substance: OLANZAPINE
     Indication: BIPOLAR DISORDER
     Route: 065
     Dates: end: 20170801

REACTIONS (1)
  - Neuroleptic malignant syndrome [Recovered/Resolved]

NARRATIVE: CASE EVENT DATE: 20170802
